FAERS Safety Report 8069787-3 (Version None)
Quarter: 2012Q1

REPORT INFORMATION
  Report Type: 
  Country: None (occurrence: None)
  Receive Date: 20120125
  Receipt Date: 20120119
  Transmission Date: 20120608
  Serious: Yes (Life-Threatening, Other)
  Sender: FDA-Public Use
  Company Number: GB-PFIZER INC-2012016364

PATIENT
  Age: 18 Year
  Sex: Female
  Weight: 72 kg

DRUGS (3)
  1. DEPO-PROVERA [Suspect]
     Indication: CONTRACEPTION
     Dosage: 150 MG, UNK
     Route: 030
     Dates: start: 20111001
  2. DICLOFENAC [Concomitant]
     Indication: TONSILLECTOMY
     Route: 048
  3. DEPO-PROVERA [Suspect]
     Dosage: 150 MG, UNK
     Route: 030
     Dates: start: 20120109

REACTIONS (4)
  - THROAT IRRITATION [None]
  - SNEEZING [None]
  - URTICARIA [None]
  - WHEEZING [None]
